FAERS Safety Report 8022731-7 (Version None)
Quarter: 2012Q1

REPORT INFORMATION
  Report Type: 
  Country: None (occurrence: None)
  Receive Date: 20120104
  Receipt Date: 20120101
  Transmission Date: 20120608
  Serious: Yes (Death)
  Sender: FDA-Public Use
  Company Number: IL-SANOFI-AVENTIS-2012SA000169

PATIENT
  Sex: Female

DRUGS (1)
  1. ENOXAPARIN SODIUM [Suspect]
     Route: 065

REACTIONS (2)
  - MULTI-ORGAN FAILURE [None]
  - DERMATITIS ALLERGIC [None]
